FAERS Safety Report 10204806 (Version 1)
Quarter: 2014Q2

REPORT INFORMATION
  Report Type: Spontaneous
  Country: US (occurrence: None)
  Receive Date: 20140527
  Receipt Date: 20140527
  Transmission Date: 20141212
  Serious: Yes (Other)
  Sender: FDA-Public Use
  Company Number: None

PATIENT
  Age: 54 Year
  Sex: Male
  Weight: 78.93 kg

DRUGS (1)
  1. CHANTIX 1 MG PHIZER [Suspect]
     Indication: EX-TOBACCO USER
     Dosage: 1 PILL, TWICE DAILY, TAKEN BY MOUTH
     Route: 048
     Dates: start: 20140419, end: 20140510

REACTIONS (3)
  - Agitation [None]
  - Mood swings [None]
  - Abnormal dreams [None]
